FAERS Safety Report 5241668-X (Version None)
Quarter: 2007Q1

REPORT INFORMATION
  Report Type: 
  Country: None (occurrence: None)
  Receive Date: 20070220
  Receipt Date: 20070206
  Transmission Date: 20070707
  Serious: Yes (Hospitalization, Other)
  Sender: FDA-Public Use
  Company Number: US-ELI_LILLY_AND_COMPANY-US200702001348

PATIENT
  Age: 77 Year
  Sex: Female
  Weight: 31.292 kg

DRUGS (4)
  1. FORTEO [Suspect]
     Indication: OSTEOPOROSIS
     Dates: start: 20061101, end: 20061201
  2. FORTEO [Suspect]
     Dosage: UNK D/F, UNK
  3. PRILOSEC [Concomitant]
     Indication: GASTROOESOPHAGEAL REFLUX DISEASE
  4. NEXIUM [Concomitant]
     Indication: GASTROOESOPHAGEAL REFLUX DISEASE

REACTIONS (11)
  - CARDIAC DISORDER [None]
  - CARDIAC VALVE DISEASE [None]
  - CONFUSIONAL STATE [None]
  - COUGH [None]
  - DECREASED APPETITE [None]
  - DYSPNOEA [None]
  - GASTROSTOMY TUBE INSERTION [None]
  - HEART RATE IRREGULAR [None]
  - MALAISE [None]
  - NAUSEA [None]
  - PNEUMONIA [None]
